FAERS Safety Report 11531439 (Version 2)
Quarter: 2015Q3

REPORT INFORMATION
  Report Type: Other
  Country: AU (occurrence: AU)
  Receive Date: 20150921
  Receipt Date: 20150921
  Transmission Date: 20151125
  Serious: Yes (Life-Threatening, Hospitalization)
  Sender: FDA-Public Use
  Company Number: AU-ETHYPHARM USA CORP-EY-BP-AU-2015-314

PATIENT
  Age: 20 Year
  Sex: Male

DRUGS (1)
  1. BUPRENORPHINE. [Suspect]
     Active Substance: BUPRENORPHINE
     Indication: DRUG DEPENDENCE

REACTIONS (4)
  - Intentional product misuse [Unknown]
  - Intentional product use issue [Unknown]
  - Acute hepatic failure [None]
  - Multi-organ failure [None]
